FAERS Safety Report 6187367-1 (Version None)
Quarter: 2009Q2

REPORT INFORMATION
  Report Type: 
  Country: None (occurrence: None)
  Receive Date: 20090512
  Receipt Date: 20090507
  Transmission Date: 20091009
  Serious: Yes (Hospitalization)
  Sender: FDA-Public Use
  Company Number: A0783312A

PATIENT
  Age: 63 Year
  Sex: Male

DRUGS (11)
  1. AMOXICILLIN AND CLAVULANATE POTASSIUM [Suspect]
     Dosage: 500MG TWICE PER DAY
     Route: 048
     Dates: start: 20090301
  2. BLINDED STUDY MEDICATION [Suspect]
     Indication: THROMBOSIS PROPHYLAXIS
     Dosage: 2.5MG PER DAY
     Route: 048
     Dates: start: 20081029
  3. CARAFATE [Suspect]
     Dosage: 1G THREE TIMES PER DAY
     Route: 048
     Dates: start: 20090301
  4. CLARITHROMYCIN [Suspect]
     Dosage: 500MG TWICE PER DAY
     Route: 048
     Dates: start: 20090301
  5. FLUCONAZOLE [Suspect]
     Dosage: 100MG PER DAY
     Route: 048
     Dates: start: 20090301
  6. PREVACID [Suspect]
     Dosage: 30MG TWICE PER DAY
     Route: 048
     Dates: start: 20090301
  7. CARVEDILOL [Concomitant]
     Dates: start: 20081028
  8. CLOPIDOGREL [Concomitant]
     Dates: start: 20081001
  9. ASPIRIN [Concomitant]
     Dates: start: 20050704
  10. NORVASC [Concomitant]
     Dates: start: 19990101
  11. LOVASTATIN [Concomitant]
     Dates: start: 20090301

REACTIONS (7)
  - ASTHENIA [None]
  - ATRIAL FIBRILLATION [None]
  - CARDIAC TAMPONADE [None]
  - CHEST DISCOMFORT [None]
  - DIZZINESS [None]
  - DYSPNOEA [None]
  - PERICARDIAL EFFUSION [None]
